FAERS Safety Report 5066155-3 (Version None)
Quarter: 2006Q3

REPORT INFORMATION
  Report Type: 
  Country: None (occurrence: None)
  Receive Date: 20060725
  Receipt Date: 20060710
  Transmission Date: 20061208
  Serious: Yes (Hospitalization, Other)
  Sender: FDA-Public Use
  Company Number: JP200602000311

PATIENT
  Sex: Female

DRUGS (3)
  1. HUMULIN 70/30 [Suspect]
     Indication: DIABETES MELLITUS
     Dosage: 46 U DAILY (1/D) ; 42 U DAILY (1/D) ; 38 U DAILY (1/D)
     Dates: end: 20051125
  2. HUMALOG MIX 50/50 [Suspect]
     Indication: DIABETES MELLITUS
     Dosage: EACH MORNING ; EACH EVENING
     Dates: start: 20060105
  3. HUMALOG [Suspect]
     Indication: DIABETES MELLITUS
     Dates: start: 20060105

REACTIONS (4)
  - ANTI-INSULIN ANTIBODY POSITIVE [None]
  - GLYCOSYLATED HAEMOGLOBIN INCREASED [None]
  - HYPOGLYCAEMIA [None]
  - LOSS OF CONSCIOUSNESS [None]
